FAERS Safety Report 5463021-6 (Version None)
Quarter: 2007Q3

REPORT INFORMATION
  Report Type: 
  Country: None (occurrence: None)
  Receive Date: 20070918
  Receipt Date: 20070918
  Transmission Date: 20080115
  Serious: No
  Sender: FDA-Public Use
  Company Number: None

PATIENT
  Sex: Male
  Weight: 129.2752 kg

DRUGS (1)
  1. RISPERDAL [Suspect]
     Indication: MENTAL DISORDER
     Dates: start: 19960415, end: 20030315

REACTIONS (5)
  - AKATHISIA [None]
  - FLAT AFFECT [None]
  - ILL-DEFINED DISORDER [None]
  - NECK PAIN [None]
  - TARDIVE DYSKINESIA [None]
